FAERS Safety Report 17672014 (Version 1)
Quarter: 2020Q2

REPORT INFORMATION
  Report Type: Spontaneous
  Country: CN (occurrence: CN)
  Receive Date: 20200415
  Receipt Date: 20200415
  Transmission Date: 20200713
  Serious: Yes (Hospitalization, Other)
  Sender: FDA-Public Use
  Company Number: CN-BAYER-2020-058005

PATIENT
  Age: 47 Year
  Sex: Female

DRUGS (8)
  1. AVELOX [Suspect]
     Active Substance: MOXIFLOXACIN HYDROCHLORIDE
     Indication: CORONAVIRUS INFECTION
     Dosage: 400 MG, QD
     Route: 041
     Dates: start: 20200219, end: 20200222
  2. OXYGEN. [Concomitant]
     Active Substance: OXYGEN
     Dosage: UNK
     Dates: start: 20200217, end: 20200305
  3. METHYLPREDNISOLONE. [Concomitant]
     Active Substance: METHYLPREDNISOLONE
     Dosage: 40 MG, QD
     Dates: start: 20200219, end: 20200224
  4. LIAN HUA QING WEN JIAO NANG [Concomitant]
     Indication: ANTIVIRAL TREATMENT
     Dosage: UNK
     Route: 048
     Dates: start: 202001
  5. AVELOX [Suspect]
     Active Substance: MOXIFLOXACIN HYDROCHLORIDE
     Indication: PNEUMONIA VIRAL
  6. AVELOX [Suspect]
     Active Substance: MOXIFLOXACIN HYDROCHLORIDE
     Indication: PNEUMONIA BACTERIAL
  7. ARBIDOL [Concomitant]
     Active Substance: UMIFENOVIR
     Indication: ANTIVIRAL TREATMENT
     Dosage: UNK
     Route: 048
     Dates: start: 202001, end: 20200226
  8. LOW MOLECULAR WEIGHT HEPARIN [Concomitant]
     Active Substance: UNSPECIFIED INGREDIENT
     Dosage: UNK
     Dates: start: 20200221, end: 20200224

REACTIONS (3)
  - Respiratory tract haemorrhage [None]
  - Drug ineffective [None]
  - Pneumonia viral [Recovering/Resolving]

NARRATIVE: CASE EVENT DATE: 202002
